FAERS Safety Report 4482127-1 (Version None)
Quarter: 2004Q4

REPORT INFORMATION
  Report Type: 
  Country: None (occurrence: None)
  Receive Date: 20041020
  Receipt Date: 20041006
  Transmission Date: 20050328
  Serious: Yes (Death, Other)
  Sender: FDA-Public Use
  Company Number: USA041080394

PATIENT
  Age: 22 Year
  Sex: Male

DRUGS (1)
  1. SYMBYAX [Suspect]
     Indication: BIPOLAR DISORDER
     Dates: start: 20040901

REACTIONS (3)
  - ALCOHOL USE [None]
  - ANTIDEPRESSANT DRUG LEVEL INCREASED [None]
  - ROAD TRAFFIC ACCIDENT [None]
